FAERS Safety Report 5901550-9 (Version None)
Quarter: 2008Q3

REPORT INFORMATION
  Report Type: 
  Country: None (occurrence: None)
  Receive Date: 20080926
  Receipt Date: 20080926
  Transmission Date: 20090109
  Serious: Yes (Hospitalization)
  Sender: FDA-Public Use
  Company Number: None

PATIENT
  Sex: Male
  Weight: 142.8 kg

DRUGS (3)
  1. THALOMID [Suspect]
     Dosage: 400 MG
  2. ACCUTANE [Suspect]
     Dosage: 400 MG
  3. TEMOZOLOMIDE [Suspect]
     Dosage: 1480 MG

REACTIONS (1)
  - DEEP VEIN THROMBOSIS [None]
